FAERS Safety Report 8170024-X (Version None)
Quarter: 2012Q1

REPORT INFORMATION
  Report Type: 
  Country: None (occurrence: None)
  Receive Date: 20120228
  Receipt Date: 20120228
  Transmission Date: 20120608
  Serious: Yes (Life-Threatening, Hospitalization)
  Sender: FDA-Public Use
  Company Number: ES-B.I. PHARMACEUTICALS,INC./RIDGEFIELD-2012-ES-00069ES

PATIENT
  Age: 75 Year
  Sex: Male

DRUGS (7)
  1. FLUTICASONE PROPIONATE [Concomitant]
     Dosage: STRENGTH: 50 MCG/250MCG. DAILY DOSE: 1DF
     Route: 055
  2. VESICARE [Concomitant]
     Dosage: 10 MG
     Route: 048
  3. OMEPRAZOLE [Concomitant]
     Dosage: 20 MG
     Route: 048
  4. IRBESARTAN [Concomitant]
     Dosage: STRENGTH: 300/12.5. DAILY DOSE 1 DF
     Route: 048
  5. SPIRIVA [Concomitant]
     Dosage: 18 MCG
     Route: 055
  6. PRADAXA [Suspect]
     Dosage: 220 MG
     Route: 048
     Dates: start: 20110804, end: 20111218
  7. AZARGA [Concomitant]
     Dosage: STRENGTH 10MG/ML + 5MG/ML IN 5ML
     Route: 047

REACTIONS (4)
  - GASTRITIS [None]
  - OESOPHAGITIS [None]
  - UPPER GASTROINTESTINAL HAEMORRHAGE [None]
  - HIATUS HERNIA [None]
